FAERS Safety Report 10589614 (Version 1)
Quarter: 2014Q4

REPORT INFORMATION
  Report Type: Spontaneous
  Country: US (occurrence: US)
  Receive Date: 20141118
  Receipt Date: 20141118
  Transmission Date: 20150529
  Serious: No
  Sender: FDA-Public Use
  Company Number: US-BAYER-2014-164547

PATIENT
  Age: 30 Year
  Sex: Male
  Weight: 142.86 kg

DRUGS (5)
  1. VITAMIN C [Concomitant]
     Active Substance: ASCORBIC ACID
     Dosage: 1 DF, QD
     Route: 048
  2. ALEVE [Suspect]
     Active Substance: NAPROXEN SODIUM
     Indication: ARTHRITIS
     Dosage: 4 DF, ONCE
     Route: 048
     Dates: start: 201409, end: 201409
  3. ALEVE [Suspect]
     Active Substance: NAPROXEN SODIUM
     Indication: ARTHRITIS
     Dosage: 2 DF, QD
     Route: 048
     Dates: start: 201409, end: 20141104
  4. PAXIL [Concomitant]
     Active Substance: PAROXETINE HYDROCHLORIDE
     Dosage: 1 DF, QD
     Route: 048
  5. XARELTO [Concomitant]
     Active Substance: RIVAROXABAN
     Dosage: 1 DF, QD
     Route: 048

REACTIONS (5)
  - Drug ineffective [None]
  - Medication error [None]
  - Abdominal pain upper [Recovered/Resolved]
  - Incorrect drug administration duration [None]
  - Extra dose administered [None]

NARRATIVE: CASE EVENT DATE: 201409
